FAERS Safety Report 21983741 (Version 1)
Quarter: 2023Q1

REPORT INFORMATION
  Report Type: Spontaneous
  Country: US (occurrence: US)
  Receive Date: 20230213
  Receipt Date: 20230213
  Transmission Date: 20230418
  Serious: Yes (Other)
  Sender: FDA-Public Use
  Company Number: US-BTGSP-US-BTGSP-23-0044

PATIENT
  Age: 58 Year
  Sex: Male

DRUGS (2)
  1. CROFAB [Suspect]
     Active Substance: CROTALIDAE POLYVALENT IMMUNE FAB (OVINE)
     Indication: Snake bite
     Dosage: UNK
     Route: 065
  2. IMMUNE GLOBULIN ANTIVENIN NOS [Suspect]
     Active Substance: IMMUNE GLOBULIN ANTIVENIN NOS
     Indication: Snake bite
     Dosage: UNK
     Route: 065

REACTIONS (4)
  - Necrosis [Unknown]
  - Muscle contractions involuntary [Unknown]
  - Off label use [Unknown]
  - Therapy change [Unknown]
